FAERS Safety Report 6686320-9 (Version None)
Quarter: 2010Q2

REPORT INFORMATION
  Report Type: 
  Country: None (occurrence: None)
  Receive Date: 20100419
  Receipt Date: 20100407
  Transmission Date: 20101027
  Serious: Yes (Hospitalization)
  Sender: FDA-Public Use
  Company Number: JP-SANOFI-AVENTIS-200911710JP

PATIENT
  Age: 82 Year
  Sex: Female
  Weight: 65 kg

DRUGS (6)
  1. FUROSEMIDE [Suspect]
     Indication: HYPERTENSION
     Route: 048
  2. AMLODIN [Suspect]
     Indication: HYPERTENSION
  3. MEVALOTIN [Suspect]
  4. ALTAT [Suspect]
     Indication: DRUG USE FOR UNKNOWN INDICATION
  5. CANDESARTAN CILEXETIL [Suspect]
  6. HEPARIN [Concomitant]

REACTIONS (3)
  - MALAISE [None]
  - PNEUMONITIS [None]
  - RESPIRATORY FAILURE [None]
